FAERS Safety Report 4357324-6 (Version None)
Quarter: 2004Q2

REPORT INFORMATION
  Report Type: 
  Country: None (occurrence: None)
  Receive Date: 20040511
  Receipt Date: 20040511
  Transmission Date: 20050107
  Serious: Yes (Other)
  Sender: FDA-Public Use
  Company Number: None

PATIENT
  Age: 43 Year
  Sex: Female

DRUGS (11)
  1. MORPHINE [Suspect]
     Indication: LITHOTRIPSY
     Dosage: 2 MG IV
     Route: 042
     Dates: start: 20040507
  2. GENERAL ANESTHESIA [Concomitant]
  3. VERSED [Concomitant]
  4. FENTANYL [Concomitant]
  5. LIDOCAINE [Concomitant]
  6. RANITIDINE [Concomitant]
  7. PROPOFOL [Concomitant]
  8. EPHEDRINE [Concomitant]
  9. LR [Concomitant]
  10. PROMETHAZINE [Concomitant]
  11. TEQUIN [Concomitant]

REACTIONS (3)
  - HYPERSENSITIVITY [None]
  - PHARMACEUTICAL PRODUCT COMPLAINT [None]
  - PRURITUS [None]
